FAERS Safety Report 9715943 (Version 1)
Quarter: 2013Q4

REPORT INFORMATION
  Report Type: Spontaneous
  Country: AU (occurrence: AU)
  Receive Date: 20131127
  Receipt Date: 20131127
  Transmission Date: 20140711
  Serious: Yes (Other)
  Sender: FDA-Public Use
  Company Number: AU-DRREDDYS-USA/AUS/13/0035813

PATIENT
  Age: 31 Year
  Sex: Female

DRUGS (5)
  1. QUETIAPINE [Suspect]
     Indication: BIPOLAR DISORDER
     Route: 065
  2. PHENELZINE [Suspect]
     Indication: BIPOLAR DISORDER
     Route: 065
  3. LITHIUM [Suspect]
     Indication: BIPOLAR DISORDER
     Route: 065
  4. METFORMIN [Concomitant]
     Indication: POLYCYSTIC OVARIES
     Route: 065
  5. METFORMIN [Concomitant]
     Indication: OLIGOMENORRHOEA

REACTIONS (6)
  - Vitamin B12 deficiency [Recovered/Resolved]
  - Obstructed labour [Recovered/Resolved]
  - Induced labour [Recovered/Resolved]
  - Caesarean section [Recovered/Resolved]
  - Postpartum haemorrhage [Recovered/Resolved]
  - Exposure during pregnancy [Recovered/Resolved]
